FAERS Safety Report 6457303-9 (Version None)
Quarter: 2009Q4

REPORT INFORMATION
  Report Type: 
  Country: None (occurrence: None)
  Receive Date: 20091125
  Receipt Date: 20091008
  Transmission Date: 20100525
  Serious: Yes (Hospitalization)
  Sender: FDA-Public Use
  Company Number: IT-PFIZER INC-2009280818

PATIENT
  Age: 72 Year
  Sex: Female

DRUGS (7)
  1. TOTALIP [Suspect]
     Indication: DYSLIPIDAEMIA
     Dosage: 5 MG, UNK
     Route: 048
     Dates: start: 20061007
  2. VERAPAMIL HYDROCHLORIDE [Concomitant]
     Dosage: 160 MG, UNK
  3. ALPRAZOLAM [Concomitant]
     Dosage: 0.5 MG, UNK
  4. QUINAZIL [Concomitant]
  5. ASPIRIN [Concomitant]
  6. DISOPYRAMIDE PHOSPHATE [Concomitant]
  7. ALDACTAZIDE [Concomitant]

REACTIONS (4)
  - ASTHENIA [None]
  - DYSPNOEA [None]
  - HYPOTHYROIDISM [None]
  - RHABDOMYOLYSIS [None]
